FAERS Safety Report 4280195-3 (Version None)
Quarter: 2004Q1

REPORT INFORMATION
  Report Type: 
  Country: None (occurrence: None)
  Receive Date: 20040128
  Receipt Date: 20040117
  Transmission Date: 20041129
  Serious: Yes (Death)
  Sender: FDA-Public Use
  Company Number: GB-GLAXOSMITHKLINE-B0320168B

PATIENT
  Sex: Male
  Weight: 1.1 kg

DRUGS (3)
  1. SALBUTAMOL SULPHATE [Suspect]
     Route: 055
  2. BECLOMETHASONE DIPROPIONATE [Suspect]
     Route: 055
  3. CANDESARTAN [Suspect]

REACTIONS (18)
  - ANTEPARTUM HAEMORRHAGE [None]
  - ANURIA [None]
  - CONGENITAL BLADDER ANOMALY [None]
  - CONGENITAL FOOT MALFORMATION [None]
  - CRANIAL SUTURES WIDENING [None]
  - DEATH NEONATAL [None]
  - DRUG EXPOSURE DURING PREGNANCY [None]
  - FOETAL GROWTH RETARDATION [None]
  - HYPOSPADIAS [None]
  - HYPOTENSION [None]
  - JOINT CONTRACTURE [None]
  - KIDNEY MALFORMATION [None]
  - MULTIPLE CONGENITAL ABNORMALITIES [None]
  - NEONATAL ANURIA [None]
  - NEONATAL HYPOTENSION [None]
  - PULMONARY CONGESTION [None]
  - RENAL AGENESIS [None]
  - SKULL MALFORMATION [None]
